FAERS Safety Report 8585440-1 (Version None)
Quarter: 2012Q2

REPORT INFORMATION
  Report Type: 
  Country: None (occurrence: None)
  Receive Date: 20120423
  Receipt Date: 20100216
  Transmission Date: 20120825
  Serious: Yes (Hospitalization)
  Sender: FDA-Public Use
  Company Number: PHEH2010US00969

PATIENT
  Age: 46 Year
  Sex: Female

DRUGS (1)
  1. EXJADE [Suspect]
     Dosage: 1000 MG, QD, ORAL
     Route: 048
     Dates: end: 20100216

REACTIONS (3)
  - ABDOMINAL PAIN [None]
  - SICKLE CELL ANAEMIA WITH CRISIS [None]
  - PAIN [None]
